FAERS Safety Report 18269106 (Version 5)
Quarter: 2021Q1

REPORT INFORMATION
  Report Type: Report from Study
  Country: US (occurrence: US)
  Receive Date: 20200915
  Receipt Date: 20210205
  Transmission Date: 20210419
  Serious: No
  Sender: FDA-Public Use
  Company Number: NVSC2020US247483

PATIENT
  Sex: Female

DRUGS (1)
  1. COSENTYX [Suspect]
     Active Substance: SECUKINUMAB
     Indication: PSORIATIC ARTHROPATHY
     Dosage: 300 MG, Q4W
     Route: 058
     Dates: start: 20200810

REACTIONS (7)
  - Onychomadesis [Unknown]
  - Gait disturbance [Unknown]
  - Product prescribing issue [Unknown]
  - Skin exfoliation [Unknown]
  - Blister [Unknown]
  - Psoriasis [Unknown]
  - Drug ineffective [Unknown]
